FAERS Safety Report 8337271-5 (Version None)
Quarter: 2012Q2

REPORT INFORMATION
  Report Type: 
  Country: None (occurrence: None)
  Receive Date: 20120502
  Receipt Date: 20120425
  Transmission Date: 20120825
  Serious: Yes (Other)
  Sender: FDA-Public Use
  Company Number: DSA_56293_2012

PATIENT
  Sex: Male
  Weight: 136.0791 kg

DRUGS (6)
  1. PAXIL [Concomitant]
  2. NORVASC [Concomitant]
  3. XENAZINE [Suspect]
     Indication: TOURETTE'S DISORDER
     Dosage: (25 MG TID ORAL), (12.5 MG BID ORAL), (12.5 MG QD ORAL)
     Route: 048
     Dates: start: 20120328
  4. XENAZINE [Suspect]
     Indication: TOURETTE'S DISORDER
     Dosage: (25 MG TID ORAL), (12.5 MG BID ORAL), (12.5 MG QD ORAL)
     Route: 048
     Dates: start: 20120401, end: 20120401
  5. XENAZINE [Suspect]
     Indication: TOURETTE'S DISORDER
     Dosage: (25 MG TID ORAL), (12.5 MG BID ORAL), (12.5 MG QD ORAL)
     Route: 048
     Dates: start: 20120401, end: 20120401
  6. ZIAC [Concomitant]

REACTIONS (2)
  - HEADACHE [None]
  - SUICIDAL IDEATION [None]
